FAERS Safety Report 16356696 (Version 1)
Quarter: 2019Q2

REPORT INFORMATION
  Report Type: Spontaneous
  Country: US (occurrence: US)
  Receive Date: 20190527
  Receipt Date: 20190527
  Transmission Date: 20190711
  Serious: No
  Sender: FDA-Public Use
  Company Number: US-JNJFOC-20190520193

PATIENT
  Age: 79 Year
  Sex: Female

DRUGS (1)
  1. IMBRUVICA [Suspect]
     Active Substance: IBRUTINIB
     Indication: CHRONIC LYMPHOCYTIC LEUKAEMIA
     Route: 048
     Dates: start: 201902

REACTIONS (4)
  - Rash pruritic [Not Recovered/Not Resolved]
  - Dry skin [Unknown]
  - Skin burning sensation [Unknown]
  - Pain of skin [Unknown]

NARRATIVE: CASE EVENT DATE: 201903
